FAERS Safety Report 24808389 (Version 3)
Quarter: 2025Q1

REPORT INFORMATION
  Report Type: Report from Study
  Country: CO (occurrence: CO)
  Receive Date: 20250106
  Receipt Date: 20250318
  Transmission Date: 20250408
  Serious: Yes (Hospitalization)
  Sender: UCB
  Company Number: CO-UCBSA-2025000322

PATIENT
  Age: 26 Year
  Sex: Female
  Weight: 48 kg

DRUGS (2)
  1. CERTOLIZUMAB PEGOL [Suspect]
     Active Substance: CERTOLIZUMAB PEGOL
     Indication: Rheumatoid arthritis
     Dosage: 400 MILLIGRAM, EV 4 WEEKS
     Route: 058
     Dates: start: 20230113, end: 20241105
  2. ACETAMINOPHEN\CODEINE PHOSPHATE [Concomitant]
     Active Substance: ACETAMINOPHEN\CODEINE PHOSPHATE
     Indication: Product used for unknown indication

REACTIONS (10)
  - Uterine contractions during pregnancy [Recovered/Resolved]
  - Caesarean section [Recovered/Resolved]
  - Bone pain [Recovered/Resolved]
  - Headache [Recovered/Resolved]
  - Galactostasis [Recovered/Resolved]
  - Nipple blister [Unknown]
  - Maternal exposure before pregnancy [Unknown]
  - Maternal exposure during pregnancy [Unknown]
  - Maternal exposure during breast feeding [Unknown]
  - Off label use [Unknown]

NARRATIVE: CASE EVENT DATE: 20230101
